FAERS Safety Report 4551609-6 (Version None)
Quarter: 2005Q1

REPORT INFORMATION
  Report Type: 
  Country: None (occurrence: None)
  Receive Date: 20050112
  Receipt Date: 20041230
  Transmission Date: 20050727
  Serious: Yes (Other)
  Sender: FDA-Public Use
  Company Number: 2005001857

PATIENT
  Sex: Female
  Weight: 32.659 kg

DRUGS (5)
  1. ZITHROMAX [Suspect]
     Indication: EAR INFECTION
     Dosage: SEE IMAGE
     Dates: end: 20041228
  2. ZITHROMAX [Suspect]
     Indication: PHARYNGITIS STREPTOCOCCAL
     Dosage: SEE IMAGE
     Dates: end: 20041228
  3. BENADRYL [Suspect]
     Indication: ILL-DEFINED DISORDER
     Dosage: SEE IMAGE
     Route: 042
     Dates: start: 20041201
  4. BENADRYL [Suspect]
     Indication: ILL-DEFINED DISORDER
     Dosage: SEE IMAGE
     Route: 042
     Dates: start: 20041228
  5. PREDNISOLONE [Concomitant]

REACTIONS (21)
  - ANGIONEUROTIC OEDEMA [None]
  - COUGH [None]
  - EAR INFECTION [None]
  - EYE SWELLING [None]
  - FLUID RETENTION [None]
  - HEART RATE INCREASED [None]
  - OEDEMA MOUTH [None]
  - ORAL INTAKE REDUCED [None]
  - OROPHARYNGEAL SWELLING [None]
  - PHARYNGOLARYNGEAL PAIN [None]
  - PHARYNX DISCOMFORT [None]
  - PYREXIA [None]
  - RESPIRATION ABNORMAL [None]
  - SOMNOLENCE [None]
  - STREPTOCOCCAL INFECTION [None]
  - SWELLING [None]
  - SWELLING FACE [None]
  - SWOLLEN TONGUE [None]
  - TONSILLAR HYPERTROPHY [None]
  - URTICARIA [None]
  - VIRAL INFECTION [None]
